FAERS Safety Report 7358353-0 (Version None)
Quarter: 2011Q1

REPORT INFORMATION
  Report Type: 
  Country: None (occurrence: None)
  Receive Date: 20110307
  Receipt Date: 20100222
  Transmission Date: 20110831
  Serious: No
  Sender: FDA-Public Use
  Company Number: AEUSA201000059

PATIENT
  Age: 45 Year
  Sex: Female
  Weight: 61.2356 kg

DRUGS (5)
  1. PROLASTIN-C [Suspect]
     Indication: ALPHA-1 ANTI-TRYPSIN DEFICIENCY
     Dosage: 90 MG/KG;QW;IV
     Route: 042
     Dates: start: 20100218
  2. SYMBICORT [Concomitant]
  3. PREMPRO [Concomitant]
  4. SEREVENT [Concomitant]
  5. SPIRIVA [Concomitant]

REACTIONS (4)
  - FATIGUE [None]
  - LETHARGY [None]
  - MYALGIA [None]
  - ARTHRALGIA [None]
